FAERS Safety Report 4712619-9 (Version None)
Quarter: 2005Q3

REPORT INFORMATION
  Report Type: 
  Country: None (occurrence: None)
  Receive Date: 20050712
  Receipt Date: 20050706
  Transmission Date: 20060218
  Serious: Yes (Hospitalization)
  Sender: FDA-Public Use
  Company Number: BE-MERCK-0507USA00648

PATIENT
  Sex: Female

DRUGS (1)
  1. COZAAR [Suspect]
     Indication: HYPERTENSION
     Route: 048

REACTIONS (4)
  - ELECTROLYTE IMBALANCE [None]
  - EPILEPSY [None]
  - HYPOKALAEMIA [None]
  - HYPONATRAEMIA [None]
